FAERS Safety Report 24318796 (Version 4)
Quarter: 2025Q3

REPORT INFORMATION
  Report Type: Spontaneous
  Country: US (occurrence: US)
  Receive Date: 20240913
  Receipt Date: 20250816
  Transmission Date: 20251021
  Serious: No
  Sender: IPSEN BIOPHARMACEUTICALS, INC.
  Company Number: US-IPSEN Group, Research and Development-2024-17907

PATIENT
  Age: 2 Year
  Sex: Female

DRUGS (5)
  1. BYLVAY [Suspect]
     Active Substance: ODEVIXIBAT
     Indication: Product used for unknown indication
     Dosage: SPRINKLE/MIX CONTENTS OF TWO 200 MCG ORAL PELLETS WITH/OVER FOOD AND TAKE BY MOUTH ONCE DAILY WIT
     Dates: start: 20240816
  2. BYLVAY [Suspect]
     Active Substance: ODEVIXIBAT
     Dosage: SPRINKLE/MIX CONTENTS OF TWO 600 MCG ORAL PELLETS WITH/OVER FOOD AND TAKE BY MOUTH ONCE DAILY.
  3. BYLVAY [Suspect]
     Active Substance: ODEVIXIBAT
     Dosage: SPRINKLE/MIX CONTENTS OF TWO 600 MCG ORAL PELLETS WITH/OVER FOOD AND TAKE?BY MOUTH ONCE DAILY WITH A MEAL.
     Dates: start: 20240813
  4. HYDROXYZINE [Concomitant]
     Active Substance: HYDROXYZINE HYDROCHLORIDE
  5. URSODIOL [Concomitant]
     Active Substance: URSODIOL

REACTIONS (2)
  - Pruritus [Unknown]
  - Hepatic enzyme increased [Unknown]
